FAERS Safety Report 6922364-7 (Version None)
Quarter: 2010Q3

REPORT INFORMATION
  Report Type: 
  Country: None (occurrence: None)
  Receive Date: 20100813
  Receipt Date: 20100802
  Transmission Date: 20110219
  Serious: Yes (Life-Threatening, Other)
  Sender: FDA-Public Use
  Company Number: DE-BAYER-201032022GPV

PATIENT
  Age: 41 Year
  Sex: Female
  Weight: 57 kg

DRUGS (1)
  1. MIRENA [Suspect]
     Indication: PRODUCT USED FOR UNKNOWN INDICATION
     Route: 015
     Dates: start: 20080801, end: 20100501

REACTIONS (9)
  - AMENORRHOEA [None]
  - BLOOD PRESSURE INCREASED [None]
  - DEPRESSION [None]
  - ECZEMA [None]
  - LISTLESS [None]
  - MIGRAINE [None]
  - SKIN DISORDER [None]
  - SLEEP DISORDER [None]
  - SUICIDAL IDEATION [None]
